FAERS Safety Report 9846994 (Version 1)
Quarter: 2013Q4

REPORT INFORMATION
  Report Type: Spontaneous
  Country: US (occurrence: None)
  Receive Date: 20131219
  Receipt Date: 20131219
  Transmission Date: 20140711
  Serious: Yes (Other)
  Sender: FDA-Public Use
  Company Number: 163-21880-13053556

PATIENT
  Age: 69 Year
  Sex: Female
  Weight: 99.8 kg

DRUGS (13)
  1. THALOMID (THALIDOMIDE) (CAPSULES) [Suspect]
     Indication: PLASMA CELL MYELOMA
     Route: 048
  2. CYCLOBENZAPRINE (CYCLOBENAZAPRINE) (10 MILLIGRAM, TABLETS) [Concomitant]
  3. MULTIVITAMINS (MULTIVITAMINS) (TABLETS) [Concomitant]
  4. OS-CAL ULTRA (OS-CAL) (TABLETS) [Concomitant]
  5. PRESERVISION (TABLETS) [Concomitant]
  6. CYMBALTA (DULOXETINE HYDROCHLORIDE) (CAPSULES) [Concomitant]
  7. DEXAMETHASONE (DEXAMETHASONE) (TABLETS) [Concomitant]
  8. FUROSEMIDE (FUROSEMIDE) (TABLETS) [Concomitant]
  9. LIPITOR (ATORVASTATIN) (TABLETS) [Concomitant]
  10. ENABLEX (DARIFENACIN HYDROBROMIDE) (TABLETS) [Concomitant]
  11. METOPROLOL TARTRATE (METOPROLOL TARTRATE) (TABLETS)? [Concomitant]
  12. OMEPRAZOLE DR (OMEPRAZOLE) (TABLETS) [Concomitant]
  13. ASPIRIN (ACETYLSALICYLIC ACID) (ENTERIC-COATED TABLET) [Concomitant]

REACTIONS (1)
  - Deep vein thrombosis [None]
